FAERS Safety Report 13645286 (Version 1)
Quarter: 2017Q2

REPORT INFORMATION
  Report Type: Spontaneous
  Country: US (occurrence: US)
  Receive Date: 20170612
  Receipt Date: 20170612
  Transmission Date: 20170830
  Serious: No
  Sender: FDA-Public Use
  Company Number: US-ROCHE-1228013

PATIENT
  Age: 78 Year
  Sex: Female
  Weight: 61.29 kg

DRUGS (2)
  1. XELODA [Suspect]
     Active Substance: CAPECITABINE
     Indication: COLON CANCER
     Dosage: FOR 2 WEEKS ON AND 1 WEEK OFF,
     Route: 048
     Dates: start: 20130312, end: 20130417
  2. LOVASTATIN. [Concomitant]
     Active Substance: LOVASTATIN

REACTIONS (3)
  - Diarrhoea [Recovered/Resolved]
  - Blood potassium decreased [Unknown]
  - Skin exfoliation [Unknown]

NARRATIVE: CASE EVENT DATE: 20130412
